FAERS Safety Report 11655018 (Version 1)
Quarter: 2015Q4

REPORT INFORMATION
  Report Type: Spontaneous
  Country: SG (occurrence: SG)
  Receive Date: 20151023
  Receipt Date: 20151023
  Transmission Date: 20160304
  Serious: Yes (Hospitalization, Other)
  Sender: FDA-Public Use
  Company Number: SG-ACTAVIS-2015-22180

PATIENT
  Age: 10 Week
  Sex: Male
  Weight: 6 kg

DRUGS (1)
  1. CLOBETASOL [Suspect]
     Active Substance: CLOBETASOL
     Indication: PRODUCT USED FOR UNKNOWN INDICATION
     Dosage: 0.05 %, UNKNOWN (EVERY CHANGE OF DIPERS)
     Route: 061

REACTIONS (3)
  - Intentional product misuse [Recovered/Resolved]
  - Cushing^s syndrome [Recovered/Resolved]
  - Cardiotoxicity [Recovered/Resolved]
